FAERS Safety Report 6204102-9 (Version None)
Quarter: 2009Q2

REPORT INFORMATION
  Report Type: 
  Country: None (occurrence: None)
  Receive Date: 20090527
  Receipt Date: 20090519
  Transmission Date: 20091009
  Serious: Yes (Life-Threatening, Hospitalization)
  Sender: FDA-Public Use
  Company Number: US-PFIZER INC-2006011546

PATIENT
  Sex: Male
  Weight: 64.5 kg

DRUGS (14)
  1. MARAVIROC [Suspect]
     Indication: HIV INFECTION
     Route: 048
     Dates: start: 20050509, end: 20050830
  2. ALBUTEROL [Concomitant]
     Indication: ASTHMA
     Dosage: 6 EVERY 1 DAYS2 INHALATIONS
     Route: 055
     Dates: start: 20000920
  3. MONTELUKAST SODIUM [Concomitant]
     Indication: PROPHYLAXIS
     Dosage: QD
     Route: 048
     Dates: start: 20000902
  4. ADVAIR DISKUS 100/50 [Concomitant]
     Indication: PROPHYLAXIS
     Dosage: 1 INHALATION, 250/50
     Route: 055
     Dates: start: 20011001
  5. BACTRIM [Concomitant]
     Indication: PROPHYLAXIS
     Route: 048
     Dates: start: 20000904
  6. DIFLUCAN [Concomitant]
     Indication: PROPHYLAXIS
     Dosage: QD
     Route: 048
     Dates: start: 20000902
  7. NEUPOGEN [Concomitant]
     Indication: NEUTROPENIA
     Route: 058
     Dates: start: 20040721, end: 20050420
  8. BENZAMYCIN [Concomitant]
     Indication: ACNE
     Route: 061
     Dates: start: 20050418, end: 20050422
  9. ELIDEL [Concomitant]
     Indication: ECZEMA
     Route: 061
     Dates: start: 20050509
  10. ZIDOVUDINE [Concomitant]
     Indication: HIV TEST POSITIVE
     Route: 065
     Dates: start: 20050504
  11. LAMIVUDINE [Concomitant]
     Indication: HIV TEST POSITIVE
     Dosage: QD
     Route: 065
     Dates: start: 20050504
  12. ABACAVIR [Concomitant]
     Indication: HIV TEST POSITIVE
     Dosage: QD
     Route: 065
     Dates: start: 20050504
  13. DIDANOSINE [Concomitant]
     Indication: HIV TEST POSITIVE
     Dosage: QD
     Route: 065
     Dates: start: 20050504
  14. ATAZANAVIR SULFATE [Concomitant]
     Indication: HIV TEST POSITIVE
     Dosage: QD
     Route: 065
     Dates: start: 20050504

REACTIONS (1)
  - SALMONELLA BACTERAEMIA [None]
